FAERS Safety Report 8943557 (Version 1)
Quarter: 2012Q4

REPORT INFORMATION
  Report Type: 
  Country: US (occurrence: US)
  Receive Date: 20121204
  Receipt Date: 20121204
  Transmission Date: 20130627
  Serious: No
  Sender: FDA-Public Use
  Company Number: US-PFIZER INC-2012299371

PATIENT
  Age: 54 Year
  Sex: Female
  Weight: 85.71 kg

DRUGS (3)
  1. NORVASC [Suspect]
     Indication: BLOOD PRESSURE HIGH
     Dosage: UNK
     Dates: start: 1998, end: 2012
  2. AMLODIPINE BESILATE [Suspect]
     Indication: BLOOD PRESSURE HIGH
     Dosage: 5 mg, 1x/day
     Route: 048
     Dates: start: 2012
  3. DIOVAN [Concomitant]
     Indication: BLOOD PRESSURE HIGH
     Dosage: UNK

REACTIONS (1)
  - Nausea [Not Recovered/Not Resolved]
